FAERS Safety Report 10076334 (Version 2)
Quarter: 2014Q2

REPORT INFORMATION
  Report Type: Spontaneous
  Country: US (occurrence: US)
  Receive Date: 20140414
  Receipt Date: 20140529
  Transmission Date: 20141212
  Serious: Yes (Hospitalization)
  Sender: FDA-Public Use
  Company Number: US-PFIZER INC-2014098354

PATIENT
  Age: 51 Year
  Sex: Male
  Weight: 86.17 kg

DRUGS (2)
  1. ZYVOX [Suspect]
     Indication: LOCALISED INFECTION
     Dosage: 600 MG, EVERY 12 HOURS
     Dates: start: 20140403, end: 20140404
  2. ZYVOX [Suspect]
     Dosage: UNK

REACTIONS (4)
  - Erythema [Unknown]
  - Peripheral swelling [Unknown]
  - Disease progression [Unknown]
  - Drug ineffective [Unknown]
